FAERS Safety Report 7324252-3 (Version None)
Quarter: 2011Q1

REPORT INFORMATION
  Report Type: 
  Country: None (occurrence: None)
  Receive Date: 20110301
  Receipt Date: 20110222
  Transmission Date: 20110831
  Serious: Yes (Other)
  Sender: FDA-Public Use
  Company Number: US-AMGEN-USASP2011010366

PATIENT
  Age: 43 Year
  Sex: Female

DRUGS (1)
  1. ENBREL [Suspect]
     Indication: RHEUMATOID ARTHRITIS
     Dosage: 50 MG, QWK
     Dates: start: 20090101, end: 20110216

REACTIONS (6)
  - WEIGHT DECREASED [None]
  - IRON DEFICIENCY [None]
  - ANAEMIA VITAMIN B12 DEFICIENCY [None]
  - FEELING ABNORMAL [None]
  - PALPITATIONS [None]
  - BLOOD PRESSURE INCREASED [None]
